FAERS Safety Report 11651622 (Version 1)
Quarter: 2015Q4

REPORT INFORMATION
  Report Type: Spontaneous
  Country: US (occurrence: None)
  Receive Date: 20151021
  Receipt Date: 20151021
  Transmission Date: 20160304
  Serious: Yes (Hospitalization)
  Sender: FDA-Public Use
  Company Number: None

PATIENT
  Age: 1 Year
  Sex: Female
  Weight: 9.53 kg

DRUGS (1)
  1. CEFDINIR. [Suspect]
     Active Substance: CEFDINIR
     Indication: URINARY TRACT INFECTION
     Dates: start: 20150627, end: 20150629

REACTIONS (3)
  - Dehydration [None]
  - Drug hypersensitivity [None]
  - Clostridium difficile infection [None]

NARRATIVE: CASE EVENT DATE: 20150627
